FAERS Safety Report 9263240 (Version 1)
Quarter: 2013Q2

REPORT INFORMATION
  Report Type: Spontaneous
  Country: LB (occurrence: LB)
  Receive Date: 20130430
  Receipt Date: 20130430
  Transmission Date: 20140414
  Serious: Yes (Death, Other)
  Sender: FDA-Public Use
  Company Number: LB-BAYER-2013-053674

PATIENT
  Age: 36 Year
  Sex: Male

DRUGS (2)
  1. NEXAVAR [Suspect]
     Indication: DERMATOFIBROSARCOMA PROTUBERANS
     Dosage: DAILY DOSE 800 MG
  2. IMATINIB [Concomitant]
     Dosage: DAILY DOSE 800 MG

REACTIONS (5)
  - Septic shock [Fatal]
  - Lung infection [None]
  - Wound dehiscence [None]
  - Off label use [None]
  - Fatigue [None]
